FAERS Safety Report 23107738 (Version 4)
Quarter: 2024Q1

REPORT INFORMATION
  Report Type: Spontaneous
  Country: US (occurrence: US)
  Receive Date: 20231026
  Receipt Date: 20240118
  Transmission Date: 20240410
  Serious: Yes (Other)
  Sender: FDA-Public Use
  Company Number: US-ELI_LILLY_AND_COMPANY-US202310014480

PATIENT
  Age: 62 Year
  Sex: Male
  Weight: 102.04 kg

DRUGS (2)
  1. TALTZ [Suspect]
     Active Substance: IXEKIZUMAB
     Indication: Psoriasis
     Dosage: 160 MG, SINGLE
     Route: 058
  2. TALTZ [Suspect]
     Active Substance: IXEKIZUMAB
     Dosage: 80 MG, 2/M (WEEKS 2,4,6,8,10,12)
     Route: 058
     Dates: end: 20231010

REACTIONS (3)
  - Renal failure [Recovered/Resolved]
  - Diarrhoea [Unknown]
  - Dyspepsia [Unknown]
